FAERS Safety Report 8695178 (Version 2)
Quarter: 2013Q4

REPORT INFORMATION
  Report Type: Spontaneous
  Country: US (occurrence: US)
  Receive Date: 20120731
  Receipt Date: 20131106
  Transmission Date: 20140711
  Serious: Yes (Hospitalization)
  Sender: FDA-Public Use
  Company Number: US-009507513-1207USA010567

PATIENT
  Age: 44 Year
  Sex: Female

DRUGS (12)
  1. ZOCOR [Suspect]
     Dosage: 20 MG, QD
     Route: 048
  2. WARFARIN [Interacting]
     Dosage: 1 DF, UNK
  3. ACETAMINOPHEN [Interacting]
     Dosage: 650 MG, PRN
     Route: 048
  4. CYMBALTA [Interacting]
     Dosage: 60 MG, QD
  5. VITAMINS (UNSPECIFIED) [Concomitant]
  6. GABAPENTIN [Concomitant]
  7. LIDOCAINE [Concomitant]
  8. INSULIN LISPRO [Concomitant]
  9. LANTUS [Concomitant]
  10. OXYCODONE [Concomitant]
  11. METOPROLOL [Concomitant]
  12. AMLODIPINE [Concomitant]

REACTIONS (9)
  - Drug interaction [Unknown]
  - International normalised ratio increased [Unknown]
  - International normalised ratio decreased [Unknown]
  - Haemoglobin decreased [Unknown]
  - Hepatic function abnormal [Unknown]
  - Aspartate aminotransferase increased [Unknown]
  - Alanine aminotransferase increased [Unknown]
  - Hepatitis [Unknown]
  - Haematocrit decreased [Unknown]
